FAERS Safety Report 5501955-4 (Version None)
Quarter: 2007Q4

REPORT INFORMATION
  Report Type: 
  Country: None (occurrence: None)
  Receive Date: 20071030
  Receipt Date: 20071020
  Transmission Date: 20080405
  Serious: Yes (Other)
  Sender: FDA-Public Use
  Company Number: US-ROCHE-526648

PATIENT

DRUGS (2)
  1. PEGASYS [Suspect]
     Route: 065
     Dates: start: 20071004
  2. RIBAVIRIN [Suspect]
     Route: 065
     Dates: start: 20071004

REACTIONS (2)
  - DELUSION [None]
  - RASH [None]
